FAERS Safety Report 10642487 (Version 1)
Quarter: 2014Q4

REPORT INFORMATION
  Report Type: Spontaneous
  Country: US (occurrence: None)
  Receive Date: 20141208
  Receipt Date: 20141208
  Transmission Date: 20150529
  Serious: No
  Sender: FDA-Public Use
  Company Number: None

PATIENT
  Age: 72 Year
  Sex: Male
  Weight: 88.45 kg

DRUGS (1)
  1. TESTOSTERONE CYPIONATE. [Suspect]
     Active Substance: TESTOSTERONE CYPIONATE
     Indication: HYPOGONADISM
     Dosage: 1MG, EVERY 2 WEEKS, INTO THE MUSCLE
     Route: 030

REACTIONS (4)
  - Injection site haematoma [None]
  - Reaction to preservatives [None]
  - Injection site pain [None]
  - Injection site nodule [None]

NARRATIVE: CASE EVENT DATE: 20141107
